FAERS Safety Report 10503463 (Version 2)
Quarter: 2014Q4

REPORT INFORMATION
  Report Type: Spontaneous
  Country: BE (occurrence: BE)
  Receive Date: 20141008
  Receipt Date: 20141205
  Transmission Date: 20150528
  Serious: Yes (Death, Other)
  Sender: FDA-Public Use
  Company Number: BE-JNJFOC-20141002708

PATIENT
  Age: 76 Year
  Sex: Female

DRUGS (7)
  1. XARELTO [Suspect]
     Active Substance: RIVAROXABAN
     Indication: CEREBROVASCULAR ACCIDENT PROPHYLAXIS
     Route: 048
     Dates: start: 20140716, end: 20140824
  2. XARELTO [Suspect]
     Active Substance: RIVAROXABAN
     Indication: ATRIAL FIBRILLATION
     Route: 048
     Dates: start: 20140716, end: 20140824
  3. FOLAVIT [Concomitant]
     Route: 065
  4. EMCONCOR [Concomitant]
     Active Substance: BISOPROLOL FUMARATE
     Route: 065
  5. ENTOCORT [Concomitant]
     Active Substance: BUDESONIDE
     Indication: CROHN^S DISEASE
     Route: 065
  6. D-CURE [Concomitant]
     Route: 065
  7. SOTALEX [Concomitant]
     Active Substance: SOTALOL
     Route: 065

REACTIONS (6)
  - Ventricular tachycardia [Unknown]
  - Anaemia [Unknown]
  - Thrombocytopenia [Fatal]
  - Myocardial infarction [Unknown]
  - Atrial fibrillation [Unknown]
  - Femoral neck fracture [Unknown]

NARRATIVE: CASE EVENT DATE: 201407
